FAERS Safety Report 21003994 (Version 3)
Quarter: 2022Q3

REPORT INFORMATION
  Report Type: Spontaneous
  Country: US (occurrence: US)
  Receive Date: 20220624
  Receipt Date: 20220906
  Transmission Date: 20221027
  Serious: Yes (Other)
  Sender: FDA-Public Use
  Company Number: US-CELGENE-USA-20220201495

PATIENT
  Age: 76 Year
  Sex: Male

DRUGS (4)
  1. REVLIMID [Suspect]
     Active Substance: LENALIDOMIDE
     Indication: Plasma cell myeloma
     Dosage: TAKE 1 CAPSULE (10MG) BY MOUTH WHOLE WITH WATER ONCE AT THE SAME TIME DAILY ON DAYS 1-21 OF EACH 28
     Route: 048
     Dates: start: 20200820
  2. REVLIMID [Suspect]
     Active Substance: LENALIDOMIDE
     Dosage: DOSE: 10 MG,  FREQUENCY: TAKE 1 CAPSULE BY MOUTH DAILY ON DAYS 1-21 OF EACH 28 DAY CYCLE. TAKE WHOLE
     Route: 048
     Dates: start: 20200828
  3. REVLIMID [Suspect]
     Active Substance: LENALIDOMIDE
     Route: 048
     Dates: start: 202010
  4. REVLIMID [Suspect]
     Active Substance: LENALIDOMIDE
     Route: 048
     Dates: start: 202110

REACTIONS (3)
  - Pneumonia [Unknown]
  - Asthenia [Unknown]
  - Full blood count abnormal [Unknown]
